FAERS Safety Report 16983294 (Version 2)
Quarter: 2019Q4

REPORT INFORMATION
  Report Type: Spontaneous
  Country: US (occurrence: US)
  Receive Date: 20191101
  Receipt Date: 20191129
  Transmission Date: 20200122
  Serious: No
  Sender: FDA-Public Use
  Company Number: US-ASTRAZENECA-2019SF41448

PATIENT
  Age: 24486 Day
  Sex: Male

DRUGS (1)
  1. BYDUREON BCISE [Suspect]
     Active Substance: EXENATIDE
     Dosage: 2.0MG UNKNOWN
     Route: 065

REACTIONS (5)
  - Device issue [Unknown]
  - Incorrect dose administered [Recovered/Resolved]
  - Wrong technique in device usage process [Unknown]
  - Injection site mass [Recovering/Resolving]
  - Injection site extravasation [Unknown]

NARRATIVE: CASE EVENT DATE: 20191002
